FAERS Safety Report 8541064-3 (Version None)
Quarter: 2012Q3

REPORT INFORMATION
  Report Type: 
  Country: None (occurrence: None)
  Receive Date: 20120726
  Receipt Date: 20110816
  Transmission Date: 20120928
  Serious: No
  Sender: FDA-Public Use
  Company Number: US-ASTRAZENECA-2011SE49350

PATIENT
  Age: 52 Year
  Sex: Male

DRUGS (7)
  1. SEROQUEL XR [Suspect]
     Indication: BIPOLAR DISORDER
     Route: 048
     Dates: end: 20110101
  2. SEROQUEL XR [Suspect]
     Route: 048
     Dates: start: 20110101
  3. SEROQUEL XR [Suspect]
     Indication: DEPRESSION
     Route: 048
     Dates: end: 20110101
  4. DEPAKOTE ER [Concomitant]
     Indication: DEPRESSION
  5. NEXIUM [Concomitant]
     Indication: GASTROOESOPHAGEAL REFLUX DISEASE
  6. SEROQUEL XR [Suspect]
     Route: 048
     Dates: start: 20110101
  7. DEPAKOTE ER [Concomitant]
     Indication: BIPOLAR DISORDER

REACTIONS (1)
  - THERAPEUTIC RESPONSE INCREASED [None]
